FAERS Safety Report 12179420 (Version 1)
Quarter: 2016Q1

REPORT INFORMATION
  Report Type: Spontaneous
  Country: US (occurrence: None)
  Receive Date: 20160314
  Receipt Date: 20160314
  Transmission Date: 20160526
  Serious: No
  Sender: FDA-Public Use
  Company Number: None

PATIENT
  Age: 42 Year
  Sex: Male
  Weight: 81.65 kg

DRUGS (1)
  1. CEFDINIR 300 [Suspect]
     Active Substance: CEFDINIR
     Indication: PERITONSILLAR ABSCESS
     Dosage: 1 PILL TWICE DAILY  TAKEN BY MOUTH
     Route: 048

REACTIONS (2)
  - Nausea [None]
  - Vomiting [None]

NARRATIVE: CASE EVENT DATE: 20160309
